FAERS Safety Report 6855141-6 (Version None)
Quarter: 2010Q3

REPORT INFORMATION
  Report Type: 
  Country: None (occurrence: None)
  Receive Date: 20100717
  Receipt Date: 20081125
  Transmission Date: 20110219
  Serious: Yes (Life-Threatening, Other)
  Sender: FDA-Public Use
  Company Number: US-PFIZER INC-2007108302

PATIENT
  Age: 54 Year
  Sex: Female
  Weight: 58.957 kg

DRUGS (1)
  1. CHANTIX [Suspect]
     Indication: SMOKING CESSATION THERAPY
     Dosage: 1 MG, 2X/DAY
     Route: 048
     Dates: start: 20070402, end: 20070908

REACTIONS (6)
  - ABNORMAL DREAMS [None]
  - AFFECT LABILITY [None]
  - DEPRESSION [None]
  - EMOTIONAL DISORDER [None]
  - HOT FLUSH [None]
  - SUICIDAL IDEATION [None]
